APPROVED DRUG PRODUCT: SULFAMETHOXAZOLE
Active Ingredient: SULFAMETHOXAZOLE
Strength: 500MG
Dosage Form/Route: TABLET;ORAL
Application: A085844 | Product #001
Applicant: RISING PHARMA HOLDINGS INC
Approved: Approved Prior to Jan 1, 1982 | RLD: No | RS: No | Type: DISCN